FAERS Safety Report 4496636-2 (Version None)
Quarter: 2004Q4

REPORT INFORMATION
  Report Type: 
  Country: None (occurrence: None)
  Receive Date: 20040923
  Receipt Date: 20040804
  Transmission Date: 20050328
  Serious: No
  Sender: FDA-Public Use
  Company Number: WAES 0408USA00549

PATIENT
  Sex: Female

DRUGS (1)
  1. INVANZ [Suspect]
     Dosage: IV
     Route: 042

REACTIONS (2)
  - BELLIGERENCE [None]
  - CONFUSIONAL STATE [None]
